APPROVED DRUG PRODUCT: ORAVIG
Active Ingredient: MICONAZOLE
Strength: 50MG
Dosage Form/Route: TABLET;BUCCAL
Application: N022404 | Product #001
Applicant: GALT PHARMACEUTICALS LLC
Approved: Apr 16, 2010 | RLD: Yes | RS: Yes | Type: RX